FAERS Safety Report 9115319 (Version 1)
Quarter: 2013Q1

REPORT INFORMATION
  Report Type: Spontaneous
  Country: FR (occurrence: FR)
  Receive Date: 20130225
  Receipt Date: 20130225
  Transmission Date: 20140127
  Serious: Yes (Hospitalization)
  Sender: FDA-Public Use
  Company Number: FR-ASTRAZENECA-2013SE10556

PATIENT
  Age: 63 Year
  Sex: Female

DRUGS (13)
  1. CRESTOR [Suspect]
     Route: 048
     Dates: end: 20121026
  2. EFFEXOR XR [Suspect]
     Route: 048
     Dates: end: 20121026
  3. AMOXICILLIN [Suspect]
     Indication: CHRONIC OBSTRUCTIVE PULMONARY DISEASE
     Route: 042
     Dates: start: 20121021, end: 20121024
  4. CLAVULANIC ACID [Suspect]
     Indication: CHRONIC OBSTRUCTIVE PULMONARY DISEASE
     Route: 042
     Dates: start: 20121021, end: 20121024
  5. LEVOTYROX [Concomitant]
  6. INEXIUM [Concomitant]
     Route: 048
  7. BETNESOL [Concomitant]
     Dosage: AS REQUIRED
  8. LERCAN [Concomitant]
     Dosage: 10
  9. TAREG [Concomitant]
     Dosage: 80
  10. TEMESTA [Concomitant]
  11. ATROVENT [Concomitant]
     Dosage: AS REQUIRED
  12. BRICANYL [Concomitant]
     Dosage: AS REQUIRED
  13. VENTOLINE [Concomitant]
     Dosage: AS REQUIRED

REACTIONS (2)
  - Hepatocellular injury [Recovering/Resolving]
  - Chronic obstructive pulmonary disease [Unknown]
